FAERS Safety Report 20908634 (Version 2)
Quarter: 2022Q3

REPORT INFORMATION
  Report Type: Spontaneous
  Country: GB (occurrence: GB)
  Receive Date: 20220603
  Receipt Date: 20220708
  Transmission Date: 20221027
  Serious: Yes (Other)
  Sender: FDA-Public Use
  Company Number: GB-CELLTRION INC.-2022GB007948

PATIENT

DRUGS (1)
  1. INFLIXIMAB [Suspect]
     Active Substance: INFLIXIMAB
     Indication: Crohn^s disease
     Dosage: 120MG PRE-FILLED PEN
     Route: 058
     Dates: start: 202204

REACTIONS (4)
  - Haematochezia [Unknown]
  - Mucous stools [Unknown]
  - Decreased appetite [Unknown]
  - Headache [Unknown]
